FAERS Safety Report 5984991-3 (Version None)
Quarter: 2008Q4

REPORT INFORMATION
  Report Type: 
  Country: None (occurrence: None)
  Receive Date: 20081208
  Receipt Date: 20080902
  Transmission Date: 20090506
  Serious: Yes (Other)
  Sender: FDA-Public Use
  Company Number: US-AMGEN-QUU289577

PATIENT
  Sex: Male

DRUGS (6)
  1. ENBREL [Suspect]
     Indication: PSORIASIS
     Route: 058
     Dates: start: 20041005, end: 20060420
  2. ENBREL [Suspect]
     Indication: PSORIATIC ARTHROPATHY
  3. ALLOPURINOL [Concomitant]
  4. CADUET [Concomitant]
  5. ZYRTEC [Concomitant]
  6. DIOVAN [Concomitant]

REACTIONS (4)
  - ANHEDONIA [None]
  - BENIGN PROSTATIC HYPERPLASIA [None]
  - POOR QUALITY SLEEP [None]
  - PROSTATE CANCER METASTATIC [None]
